FAERS Safety Report 25627461 (Version 1)
Quarter: 2025Q3

REPORT INFORMATION
  Report Type: Spontaneous
  Country: EU (occurrence: EU)
  Receive Date: 20250731
  Receipt Date: 20250731
  Transmission Date: 20251020
  Serious: Yes (Other)
  Sender: AUROBINDO
  Company Number: EU-LRB-01075123

PATIENT
  Age: 20 Year
  Sex: Female
  Weight: 51 kg

DRUGS (3)
  1. CIPROFLOXACIN [Suspect]
     Active Substance: CIPROFLOXACIN
     Indication: Product used for unknown indication
     Dosage: 1 DOSAGE FORM, TWO TIMES A DAY (2 X PER DAG 1 STUK)
     Route: 048
     Dates: start: 20250714
  2. METRONIDAZOLE [Suspect]
     Active Substance: METRONIDAZOLE
     Indication: Product used for unknown indication
     Dosage: 500 MILLIGRAM, TWO TIMES A DAY (2 X PER DAG 1 STUK)
     Route: 048
     Dates: start: 20250714
  3. NAPROXEN [Suspect]
     Active Substance: NAPROXEN
     Indication: Product used for unknown indication
     Dosage: 550 MILLIGRAM, TWO TIMES A DAY (2 X PER DAG 1 STUK)
     Route: 048
     Dates: start: 20250714

REACTIONS (2)
  - Hallucination [Recovering/Resolving]
  - Initial insomnia [Recovering/Resolving]
